FAERS Safety Report 6175737-7 (Version None)
Quarter: 2009Q2

REPORT INFORMATION
  Report Type: 
  Country: None (occurrence: None)
  Receive Date: 20090501
  Receipt Date: 20090429
  Transmission Date: 20091009
  Serious: Yes (Death)
  Sender: FDA-Public Use
  Company Number: CA-B.I. PHARMACEUTICALS,INC./RIDGEFIELD-2009-CN-00312CN

PATIENT
  Sex: Male

DRUGS (4)
  1. CATAPRES [Suspect]
     Indication: PAIN MANAGEMENT
     Dosage: 150MCG
     Route: 037
     Dates: start: 20090326
  2. HYDROMORPHONE HCL [Concomitant]
     Indication: PAIN MANAGEMENT
     Dosage: 24MG
     Route: 058
     Dates: start: 20080101
  3. MORPHINE [Concomitant]
     Indication: PAIN MANAGEMENT
     Dosage: 10MG
     Route: 037
     Dates: start: 20090325
  4. BUPIVACAINE [Concomitant]
     Indication: PAIN MANAGEMENT
     Dosage: 12MG
     Route: 037
     Dates: start: 20090325

REACTIONS (1)
  - PNEUMONIA [None]
